FAERS Safety Report 4567805-8 (Version None)
Quarter: 2005Q1

REPORT INFORMATION
  Report Type: 
  Country: None (occurrence: None)
  Receive Date: 20050128
  Receipt Date: 20040830
  Transmission Date: 20050727
  Serious: Yes (Hospitalization)
  Sender: FDA-Public Use
  Company Number: GXKR2004BE00681

PATIENT
  Age: 58 Year
  Sex: Male

DRUGS (5)
  1. SPIRONOLACTONE [Suspect]
     Dates: start: 19990903, end: 19991022
  2. COLCHICINE (COLCHICINE) [Concomitant]
  3. AMIODARONE HCL [Concomitant]
  4. ALLOPURINOL [Concomitant]
  5. PERINDOPRIL (PERINDOPRIL) [Concomitant]

REACTIONS (18)
  - ANOREXIA [None]
  - CARDIAC FAILURE [None]
  - COAGULOPATHY [None]
  - CONDITION AGGRAVATED [None]
  - CYTOLYTIC HEPATITIS [None]
  - DERMATITIS EXFOLIATIVE [None]
  - DRUG RASH WITH EOSINOPHILIA AND SYSTEMIC SYMPTOMS [None]
  - HEPATIC FAILURE [None]
  - HYPOPROTEINAEMIA [None]
  - JAUNDICE CHOLESTATIC [None]
  - METABOLIC ACIDOSIS [None]
  - OEDEMA PERIPHERAL [None]
  - PANCREATIC INSUFFICIENCY [None]
  - PROSTRATION [None]
  - PRURITUS [None]
  - PYREXIA [None]
  - RENAL FAILURE [None]
  - STEATORRHOEA [None]
